FAERS Safety Report 12807247 (Version 1)
Quarter: 2016Q4

REPORT INFORMATION
  Report Type: Spontaneous
  Country: FR (occurrence: FR)
  Receive Date: 20161004
  Receipt Date: 20161004
  Transmission Date: 20170207
  Serious: Yes (Hospitalization, Other)
  Sender: FDA-Public Use
  Company Number: FR-PFIZER INC-033-0581-M0000001

PATIENT
  Age: 60 Year
  Sex: Male

DRUGS (7)
  1. CLIVARINE [Suspect]
     Active Substance: REVIPARIN SODIUM
     Dosage: 750 DF, DAILY
     Route: 058
     Dates: start: 19991207, end: 19991214
  2. MORPHINE [Concomitant]
     Active Substance: MORPHINE
     Dosage: 60 MG, DAILY
     Dates: start: 19991207
  3. MOPRAL /00661201/ [Suspect]
     Active Substance: OMEPRAZOLE SODIUM
     Dosage: 20 MG, DAILY
     Route: 048
     Dates: start: 19991207, end: 19991214
  4. KETALAR [Suspect]
     Active Substance: KETAMINE HYDROCHLORIDE
     Indication: PAIN
     Dosage: 500 MG, UNK
     Route: 058
     Dates: start: 19991207, end: 19991212
  5. ROCEPHINE [Suspect]
     Active Substance: CEFTRIAXONE SODIUM
     Dosage: DAILY
     Route: 042
     Dates: start: 19991207, end: 19991218
  6. HALDOL [Suspect]
     Active Substance: HALOPERIDOL
     Dosage: DAILY
     Route: 048
     Dates: start: 19991207, end: 19991214
  7. LASILIX [Suspect]
     Active Substance: FUROSEMIDE
     Dosage: 40 MG, DAILY
     Route: 048
     Dates: start: 19991207, end: 19991214

REACTIONS (5)
  - Cholestasis [Unknown]
  - Confusional state [Unknown]
  - Hepatic steatosis [Unknown]
  - Hepatic enzyme increased [Unknown]
  - Hyponatraemia [Unknown]
